FAERS Safety Report 4430816-7 (Version None)
Quarter: 2004Q3

REPORT INFORMATION
  Report Type: 
  Country: None (occurrence: None)
  Receive Date: 20040823
  Receipt Date: 20040813
  Transmission Date: 20050211
  Serious: Yes (Hospitalization)
  Sender: FDA-Public Use
  Company Number: US-AMGEN-US086993

PATIENT
  Sex: Female

DRUGS (8)
  1. SENSIPAR [Suspect]
     Indication: HYPERPARATHYROIDISM SECONDARY
     Route: 048
     Dates: start: 20030311, end: 20040809
  2. DIATX [Suspect]
     Route: 048
  3. PRAVACHOL [Suspect]
     Route: 048
  4. PREVACID [Suspect]
     Route: 048
  5. TRENTAL [Suspect]
     Route: 048
  6. DIGOXIN [Suspect]
  7. GLIPIZIDE [Concomitant]
     Route: 048
  8. TUMS [Concomitant]

REACTIONS (4)
  - ARTHRALGIA [None]
  - ASTHENIA [None]
  - HYPOPHOSPHATAEMIA [None]
  - LEUKOPENIA [None]
